FAERS Safety Report 5007526-0 (Version None)
Quarter: 2006Q2

REPORT INFORMATION
  Report Type: 
  Country: None (occurrence: None)
  Receive Date: 20060522
  Receipt Date: 20060518
  Transmission Date: 20061013
  Serious: Yes (Death, Other)
  Sender: FDA-Public Use
  Company Number: PHBS2006JP07419

PATIENT
  Age: 64 Year
  Sex: Male

DRUGS (3)
  1. VOLTAREN [Suspect]
     Indication: POSTOPERATIVE ANALGESIA
     Dosage: 25 MG, TID
     Route: 054
     Dates: start: 20060306, end: 20060306
  2. SEVOFLURANE [Suspect]
     Route: 065
  3. SEDAPAIN [Concomitant]
     Dosage: 15 MG/DAY
     Route: 065

REACTIONS (2)
  - HEPATITIS FULMINANT [None]
  - SHOCK [None]
